FAERS Safety Report 16028931 (Version 1)
Quarter: 2019Q2

REPORT INFORMATION
  Report Type: Spontaneous
  Country: IE (occurrence: IE)
  Receive Date: 20190301
  Receipt Date: 20190301
  Transmission Date: 20190711
  Serious: Yes (Life-Threatening, Hospitalization, Other)
  Sender: FDA-Public Use
  Company Number: None

PATIENT
  Age: 22 Year
  Sex: Male
  Weight: 45 kg

DRUGS (1)
  1. EXJADE [Suspect]
     Active Substance: DEFERASIROX
     Indication: IRON OVERLOAD
     Dosage: ?          QUANTITY:4 TABLET(S);?
     Route: 048

REACTIONS (11)
  - Flank pain [None]
  - Abdominal pain upper [None]
  - Multiple organ dysfunction syndrome [None]
  - Metabolic acidosis [None]
  - Weight decreased [None]
  - Dyspepsia [None]
  - Chest pain [None]
  - Decreased appetite [None]
  - Gastrointestinal haemorrhage [None]
  - Barrett^s oesophagus [None]
  - Unevaluable event [None]

NARRATIVE: CASE EVENT DATE: 20180302
